FAERS Safety Report 19347403 (Version 1)
Quarter: 2021Q2

REPORT INFORMATION
  Report Type: Spontaneous
  Country: US (occurrence: US)
  Receive Date: 20210531
  Receipt Date: 20210531
  Transmission Date: 20210717
  Serious: No
  Sender: FDA-Public Use
  Company Number: US-KVK-TECH, INC-20210400044

PATIENT
  Sex: Male
  Weight: 111.11 kg

DRUGS (7)
  1. METHYLPHENIDATE HYDROCHLORIDE TABLETS, USP [Suspect]
     Active Substance: METHYLPHENIDATE HYDROCHLORIDE
     Indication: SOMNOLENCE
     Dosage: UNK
     Route: 048
     Dates: start: 202101
  2. HALOPERIDOL. [Concomitant]
     Active Substance: HALOPERIDOL
     Indication: SCHIZOPHRENIA
  3. METHYLPHENIDATE HYDROCHLORIDE TABLETS, USP [Suspect]
     Active Substance: METHYLPHENIDATE HYDROCHLORIDE
     Indication: ATTENTION DEFICIT HYPERACTIVITY DISORDER
  4. EFFEXOR [Concomitant]
     Active Substance: VENLAFAXINE HYDROCHLORIDE
     Indication: DEPRESSION
     Dosage: 150 MILLIGRAM ONCE A DAY IN MORNING, QD
  5. METHYLPHENIDATE HYDROCHLORIDE TABLETS, USP [Suspect]
     Active Substance: METHYLPHENIDATE HYDROCHLORIDE
     Indication: FATIGUE
  6. WELLBUTRIN [Concomitant]
     Active Substance: BUPROPION HYDROCHLORIDE
     Indication: DEPRESSION
     Dosage: 450 MILLIGRAM, QD
  7. HALOPERIDOL. [Concomitant]
     Active Substance: HALOPERIDOL
     Indication: ANGER
     Dosage: 5 MILLIGRAM ONE TIME AT NIGHT, QD

REACTIONS (6)
  - Wrong technique in product usage process [Unknown]
  - Product odour abnormal [Unknown]
  - Drug ineffective [Unknown]
  - Product taste abnormal [Unknown]
  - Adverse event [Unknown]
  - Muscle tightness [Recovered/Resolved]

NARRATIVE: CASE EVENT DATE: 2021
